FAERS Safety Report 9043493 (Version 1)
Quarter: 2013Q1

REPORT INFORMATION
  Report Type: Report from Study
  Country: US (occurrence: US)
  Receive Date: 20130129
  Receipt Date: 20130129
  Transmission Date: 20140127
  Serious: No
  Sender: FDA-Public Use
  Company Number: US-ABBOTT-12P-163-0911514-00

PATIENT
  Age: 53 Year
  Sex: Female

DRUGS (6)
  1. HUMIRA 40 MG/0.8 ML PEN [Suspect]
     Indication: RHEUMATOID ARTHRITIS
     Dates: start: 20120228
  2. VICODIN [Suspect]
     Indication: ARTHRALGIA
     Dates: start: 20120229
  3. PREDNISONE [Concomitant]
     Indication: RHEUMATOID ARTHRITIS
     Dosage: DECREASING DOSES
  4. RANITIDINE [Concomitant]
     Indication: PROPHYLAXIS AGAINST GASTROINTESTINAL ULCER
  5. PLAVIX [Concomitant]
     Indication: CORONARY ARTERIAL STENT INSERTION
  6. UNKNOWN ANTIDEPRESSANTS [Concomitant]
     Indication: DEPRESSION

REACTIONS (7)
  - Pain in extremity [Not Recovered/Not Resolved]
  - Vomiting [Recovered/Resolved]
  - Asthenia [Not Recovered/Not Resolved]
  - Contusion [Not Recovered/Not Resolved]
  - Fall [Recovered/Resolved]
  - Insomnia [Not Recovered/Not Resolved]
  - Fall [Recovered/Resolved]
